FAERS Safety Report 9730680 (Version 1)
Quarter: 2013Q4

REPORT INFORMATION
  Report Type: Spontaneous
  Country: US (occurrence: US)
  Receive Date: 20131205
  Receipt Date: 20131205
  Transmission Date: 20140711
  Serious: No
  Sender: FDA-Public Use
  Company Number: US-009507513-1312USA001484

PATIENT
  Age: 66 Year
  Sex: Female

DRUGS (5)
  1. TEMODAR [Suspect]
     Indication: SARCOMA
     Dosage: SINGLE 100 MG TABLET OF TEMODAR WITH SINGLE 20 MG TABLET OF TEMODAR SIMULTANEOUSLY ONCE DAILY
     Route: 048
     Dates: start: 20131201
  2. TEMODAR [Suspect]
     Dosage: SINGLE 20 MG TABLET WITH SINGLE 100 MG TABLET OF TEMODAR SIMULTANEOUSLY ONCE DAILY
     Route: 048
     Dates: start: 20131201
  3. TAPAZOLE [Concomitant]
  4. INDERAL [Concomitant]
  5. HYDROCHLOROTHIAZIDE [Concomitant]

REACTIONS (1)
  - Nausea [Not Recovered/Not Resolved]
